FAERS Safety Report 25134743 (Version 2)
Quarter: 2025Q3

REPORT INFORMATION
  Report Type: Spontaneous
  Country: US (occurrence: US)
  Receive Date: 20250328
  Receipt Date: 20250730
  Transmission Date: 20251020
  Serious: Yes (Other)
  Sender: PADAGIS
  Company Number: US-PADAGIS-2025PAD00335

PATIENT

DRUGS (3)
  1. TRIAMCINOLONE ACETONIDE [Suspect]
     Active Substance: TRIAMCINOLONE ACETONIDE
     Indication: Pemphigoid
     Route: 061
  2. CLOBETASOL PROPIONATE [Suspect]
     Active Substance: CLOBETASOL PROPIONATE
     Indication: Pemphigoid
     Route: 061
  3. AXITINIB;PEMBROLIZUMAB [Concomitant]
     Indication: Metastatic renal cell carcinoma
     Route: 065

REACTIONS (1)
  - Treatment failure [Unknown]
